FAERS Safety Report 8942116 (Version 1)
Quarter: 2012Q4

REPORT INFORMATION
  Report Type: 
  Country: FR (occurrence: FR)
  Receive Date: 20121130
  Receipt Date: 20121130
  Transmission Date: 20130627
  Serious: Yes (Hospitalization)
  Sender: FDA-Public Use
  Company Number: FR-GLAXOSMITHKLINE-B0847003A

PATIENT
  Age: 67 Year
  Sex: Female

DRUGS (1)
  1. ARIXTRA [Suspect]
     Indication: DEEP VEIN THROMBOSIS
     Dosage: 7.5MG Per day
     Route: 058
     Dates: start: 20121113, end: 20121114

REACTIONS (2)
  - Visual impairment [Unknown]
  - Pulmonary embolism [Unknown]
